FAERS Safety Report 6401153-6 (Version None)
Quarter: 2009Q4

REPORT INFORMATION
  Report Type: 
  Country: None (occurrence: None)
  Receive Date: 20091015
  Receipt Date: 20070405
  Transmission Date: 20100525
  Serious: Yes (Disabling)
  Sender: FDA-Public Use
  Company Number: US-ASTRAZENECA-2006UW07975

PATIENT
  Sex: Male
  Weight: 68.5 kg

DRUGS (10)
  1. SEROQUEL [Suspect]
     Indication: SLEEP DISORDER
     Dosage: 25 MG - 400 MG
     Route: 048
     Dates: start: 20030320
  2. BUSPIRONE HCL [Concomitant]
     Dates: start: 20020209
  3. RISPERDAL [Concomitant]
     Dosage: 4 MG - 6 MG
     Dates: start: 20020305
  4. EFFEXOR XR [Concomitant]
     Dosage: 37.5 , 75 MG -150 MG
     Dates: start: 20020305
  5. GLIPIZIDE [Concomitant]
     Dates: start: 20040417
  6. METFORMIN HCL [Concomitant]
     Dates: start: 20040417
  7. ZOLOFT [Concomitant]
     Dates: start: 20040417
  8. HYDROXYZINE [Concomitant]
     Dates: start: 20040417
  9. WELLBUTRIN SR [Concomitant]
     Dates: start: 20051205
  10. PROPRANOLOL [Concomitant]
     Dates: start: 20060904

REACTIONS (2)
  - ILL-DEFINED DISORDER [None]
  - MULTIPLE INJURIES [None]
